FAERS Safety Report 25774021 (Version 1)
Quarter: 2025Q3

REPORT INFORMATION
  Report Type: Spontaneous
  Country: US (occurrence: None)
  Receive Date: 20250907
  Receipt Date: 20250907
  Transmission Date: 20251021
  Serious: No
  Sender: FDA-CTU
  Company Number: None

PATIENT
  Age: 74 Year
  Sex: Female
  Weight: 63 kg

DRUGS (9)
  1. LINZESS [Suspect]
     Active Substance: LINACLOTIDE
     Indication: Abdominal pain
     Dosage: OTHER STRENGTH : MCG;?OTHER QUANTITY : 30 CAPSULE(S);?FREQUENCY : DAILY;?
     Route: 048
     Dates: start: 20250805, end: 20250829
  2. LINZESS [Suspect]
     Active Substance: LINACLOTIDE
     Indication: Abdominal distension
  3. LINZESS [Suspect]
     Active Substance: LINACLOTIDE
     Indication: Diarrhoea
  4. Finasteride 5mg, half tablet daily [Concomitant]
  5. Quinol [Concomitant]
  6. PROBIOTICS NOS [Concomitant]
     Active Substance: PROBIOTICS NOS
  7. multi-vitamins [Concomitant]
  8. BIOTIN [Concomitant]
     Active Substance: BIOTIN
  9. plant sterols [Concomitant]

REACTIONS (3)
  - Abdominal pain [None]
  - Abdominal distension [None]
  - Condition aggravated [None]
